FAERS Safety Report 19477681 (Version 1)
Quarter: 2021Q2

REPORT INFORMATION
  Report Type: Spontaneous
  Country: US (occurrence: US)
  Receive Date: 20210630
  Receipt Date: 20210630
  Transmission Date: 20210717
  Serious: Yes (Other)
  Sender: FDA-Public Use
  Company Number: US-TAKEDA-2021TUS040509

PATIENT

DRUGS (2)
  1. PREVACID [Suspect]
     Active Substance: LANSOPRAZOLE
     Indication: PRODUCT USED FOR UNKNOWN INDICATION
     Dosage: UNK
     Route: 065
  2. DEXILANT [Suspect]
     Active Substance: DEXLANSOPRAZOLE
     Indication: IMPAIRED GASTRIC EMPTYING
     Dosage: 60 MILLIGRAM
     Route: 065

REACTIONS (3)
  - Vomiting [Unknown]
  - Product use in unapproved indication [Unknown]
  - Renal impairment [Unknown]
